FAERS Safety Report 10865739 (Version 3)
Quarter: 2015Q1

REPORT INFORMATION
  Report Type: Spontaneous
  Country: US (occurrence: US)
  Receive Date: 20150224
  Receipt Date: 20150226
  Transmission Date: 20150721
  Serious: Yes (Other)
  Sender: FDA-Public Use
  Company Number: US-GLAXOSMITHKLINE-US2015GSK024656

PATIENT
  Sex: Female

DRUGS (11)
  1. BIOTIN [Concomitant]
     Active Substance: BIOTIN
  2. BENLYSTA [Suspect]
     Active Substance: BELIMUMAB
     Indication: SYSTEMIC LUPUS ERYTHEMATOSUS
     Dosage: UNK, U
     Route: 042
     Dates: start: 2012
  3. HYDROXYCHLOROQUINE [Concomitant]
     Active Substance: HYDROXYCHLOROQUINE
  4. VITAMIN B12 [Concomitant]
     Active Substance: CYANOCOBALAMIN
  5. CHONDROITIN SULFATE (BOVINE)\GLUCOSAMINE SULFATE [Concomitant]
     Active Substance: CHONDROITIN SULFATE (BOVINE)\GLUCOSAMINE SULFATE
  6. ONE A DAY [Concomitant]
  7. VOLTAREN [Concomitant]
     Active Substance: DICLOFENAC SODIUM
  8. ASPIRIN. [Concomitant]
     Active Substance: ASPIRIN
  9. NAPROSYN [Concomitant]
     Active Substance: NAPROXEN
  10. METHOTREXATE [Concomitant]
     Active Substance: METHOTREXATE
  11. CRANBERRY TABLETS [Concomitant]

REACTIONS (3)
  - Systemic lupus erythematosus [Not Recovered/Not Resolved]
  - Muscle spasms [Recovering/Resolving]
  - Rash [Unknown]

NARRATIVE: CASE EVENT DATE: 2012
